FAERS Safety Report 9706544 (Version 2)
Quarter: 2014Q1

REPORT INFORMATION
  Report Type: Spontaneous
  Country: US (occurrence: US)
  Receive Date: 20131125
  Receipt Date: 20140130
  Transmission Date: 20141002
  Serious: Yes (Death, Hospitalization, Other)
  Sender: FDA-Public Use
  Company Number: US-BRISTOL-MYERS SQUIBB COMPANY-19838978

PATIENT
  Age: 43 Year
  Sex: Female
  Weight: 102.04 kg

DRUGS (17)
  1. ABILIFY [Suspect]
     Dosage: 22OCT13,PILLS
     Route: 048
     Dates: start: 20130529, end: 20131022
  2. ABILIFY MAINTENA INJECTION [Suspect]
     Indication: SCHIZOPHRENIA
     Dosage: IM DEPOT,28SEP13
     Route: 030
     Dates: start: 201306, end: 2013
  3. RISPERDAL CONSTA [Concomitant]
     Route: 030
  4. RISPERDAL [Concomitant]
     Route: 048
  5. TOPAMAX [Concomitant]
     Indication: CONVULSION
  6. TOPAMAX [Concomitant]
     Indication: WEIGHT CONTROL
  7. DEPAKOTE [Concomitant]
     Dosage: 750MG,AT BED TIME
     Dates: end: 20130313
  8. THORAZINE [Concomitant]
  9. IBUPROFEN [Concomitant]
  10. TYLENOL [Concomitant]
  11. TESSALON [Concomitant]
  12. ZOVIRAX [Concomitant]
  13. AMBIEN [Concomitant]
     Dosage: AT BED TIME
  14. COGENTIN [Concomitant]
     Dosage: AT BED TIME
  15. HALDOL [Concomitant]
     Dosage: EVERY FOUR TO SIX HOURS AS NEEDED (Q4-6PM)
  16. ATIVAN [Concomitant]
  17. EFFEXOR XR [Concomitant]

REACTIONS (8)
  - Death [Fatal]
  - Blood glucose increased [Unknown]
  - Psychotic disorder [Unknown]
  - Depressed level of consciousness [Unknown]
  - Agitation [Unknown]
  - Gait disturbance [Recovered/Resolved]
  - Tachycardia [Unknown]
  - Fall [Unknown]
